FAERS Safety Report 15145366 (Version 4)
Quarter: 2019Q1

REPORT INFORMATION
  Report Type: Spontaneous
  Country: US (occurrence: US)
  Receive Date: 20180713
  Receipt Date: 20190104
  Transmission Date: 20190417
  Serious: Yes (Hospitalization)
  Sender: FDA-Public Use
  Company Number: US-ACTELION-A-US2018-175141

PATIENT
  Age: 64 Year
  Sex: Male

DRUGS (2)
  1. OPSUMIT [Suspect]
     Active Substance: MACITENTAN
     Indication: PULMONARY ARTERIAL HYPERTENSION
     Dosage: 10 MG, QD
     Route: 048
     Dates: start: 20170121
  2. OPSUMIT [Suspect]
     Active Substance: MACITENTAN
     Dosage: 10 MG, QD
     Route: 048
     Dates: start: 201812

REACTIONS (5)
  - Pulmonary arterial hypertension [Not Recovered/Not Resolved]
  - Dyspnoea [Unknown]
  - Arrhythmia [Not Recovered/Not Resolved]
  - Product dose omission [Unknown]
  - Malaise [Unknown]

NARRATIVE: CASE EVENT DATE: 201807
